FAERS Safety Report 11400097 (Version 1)
Quarter: 2015Q3

REPORT INFORMATION
  Report Type: Spontaneous
  Country: US (occurrence: None)
  Receive Date: 20150819
  Receipt Date: 20150819
  Transmission Date: 20151125
  Serious: No
  Sender: FDA-Public Use
  Company Number: None

PATIENT
  Age: 65 Year
  Sex: Female

DRUGS (1)
  1. COPAXONE [Suspect]
     Active Substance: GLATIRAMER ACETATE
     Indication: MULTIPLE SCLEROSIS
     Route: 058
     Dates: start: 20150428, end: 20150728

REACTIONS (6)
  - Skin lesion [None]
  - Urticaria [None]
  - Pruritus [None]
  - Nausea [None]
  - Vomiting [None]
  - Erythema [None]

NARRATIVE: CASE EVENT DATE: 20150502
